FAERS Safety Report 6573392-5 (Version None)
Quarter: 2010Q1

REPORT INFORMATION
  Report Type: 
  Country: None (occurrence: None)
  Receive Date: 20100208
  Receipt Date: 20100128
  Transmission Date: 20100710
  Serious: No
  Sender: FDA-Public Use
  Company Number: US-B.I. PHARMACEUTICALS,INC./RIDGEFIELD-2010-BP-01167BP

PATIENT
  Sex: Male

DRUGS (2)
  1. CLONIDINE HCL [Suspect]
     Indication: HYPERTENSION
     Dates: start: 20070101
  2. LANTUS [Suspect]
     Indication: DIABETES MELLITUS

REACTIONS (2)
  - DRUG INTERACTION [None]
  - TINNITUS [None]
